FAERS Safety Report 18148752 (Version 1)
Quarter: 2020Q3

REPORT INFORMATION
  Report Type: Spontaneous
  Country: US (occurrence: US)
  Receive Date: 20200813
  Receipt Date: 20200813
  Transmission Date: 20201103
  Serious: No
  Sender: FDA-Public Use
  Company Number: None

PATIENT
  Age: 34 Year
  Sex: Female

DRUGS (1)
  1. GLATIRAMER PFS 40MG/ML [Suspect]
     Active Substance: GLATIRAMER ACETATE
     Dosage: FREQUENCY: OTHER
     Route: 058
     Dates: start: 2012

REACTIONS (5)
  - Heart rate increased [None]
  - Chills [None]
  - Chest discomfort [None]
  - Flushing [None]
  - Muscle spasms [None]

NARRATIVE: CASE EVENT DATE: 20200708
